FAERS Safety Report 9496964 (Version 1)
Quarter: 2013Q3

REPORT INFORMATION
  Report Type: Report from Study
  Country: US (occurrence: US)
  Receive Date: 20130904
  Receipt Date: 20130904
  Transmission Date: 20140515
  Serious: Yes (Other)
  Sender: FDA-Public Use
  Company Number: US-JNJFOC-20130815844

PATIENT
  Sex: Male
  Weight: 145.15 kg

DRUGS (11)
  1. REMICADE [Suspect]
     Indication: COLITIS ULCERATIVE
     Route: 042
  2. REMICADE [Suspect]
     Indication: COLITIS ULCERATIVE
     Route: 042
     Dates: start: 2011
  3. REMICADE [Suspect]
     Indication: COLITIS ULCERATIVE
     Route: 042
  4. VITAMIN D [Concomitant]
     Route: 065
     Dates: start: 2013
  5. PROBIOTIC [Concomitant]
     Route: 065
     Dates: start: 2013
  6. LISINOPRIL [Concomitant]
     Route: 048
     Dates: start: 2011
  7. FENOFIBRATE [Concomitant]
     Route: 048
     Dates: start: 2011
  8. CARVEDILOL [Concomitant]
     Route: 048
     Dates: start: 2011
  9. ASPIRIN [Concomitant]
     Route: 048
  10. INSULIN [Concomitant]
     Indication: BLOOD GLUCOSE FLUCTUATION
     Route: 065
     Dates: start: 2013
  11. GLIMEPIRIDE [Concomitant]
     Indication: BLOOD GLUCOSE FLUCTUATION
     Route: 048
     Dates: start: 2011

REACTIONS (4)
  - Colon dysplasia [Recovering/Resolving]
  - Frequent bowel movements [Recovered/Resolved]
  - Drug ineffective [Recovered/Resolved]
  - Pain [Recovered/Resolved]
